FAERS Safety Report 15834636 (Version 1)
Quarter: 2019Q1

REPORT INFORMATION
  Report Type: Spontaneous
  Country: NL (occurrence: NL)
  Receive Date: 20190116
  Receipt Date: 20190116
  Transmission Date: 20190417
  Serious: Yes (Other)
  Sender: FDA-Public Use
  Company Number: NL-CELGENEUS-NLD-20181109855

PATIENT
  Age: 63 Year
  Sex: Male

DRUGS (16)
  1. LISINOPRIL. [Concomitant]
     Active Substance: LISINOPRIL
     Indication: PRODUCT USED FOR UNKNOWN INDICATION
     Route: 065
     Dates: start: 20181115
  2. SPIRONOLACTON [Concomitant]
     Active Substance: SPIRONOLACTONE
     Indication: RENAL IMPAIRMENT
     Dosage: 25 MILLIGRAM
     Route: 065
     Dates: end: 20181112
  3. SPIRONOLACTON [Concomitant]
     Active Substance: SPIRONOLACTONE
     Indication: PRODUCT USED FOR UNKNOWN INDICATION
     Route: 065
     Dates: start: 20181115
  4. ATORVASTATIN [Concomitant]
     Active Substance: ATORVASTATIN
     Indication: RENAL IMPAIRMENT
     Dosage: 80 MILLIGRAM
     Route: 065
     Dates: end: 20181112
  5. ACENOCOUMAROL [Concomitant]
     Active Substance: ACENOCOUMAROL
     Indication: RENAL IMPAIRMENT
     Dosage: VOLGENS SCHEMA
     Route: 065
     Dates: end: 20181112
  6. OTEZLA [Suspect]
     Active Substance: APREMILAST
     Dosage: 30 MILLIGRAM
     Route: 048
     Dates: start: 20181115, end: 2018
  7. METOPROLOL. [Concomitant]
     Active Substance: METOPROLOL
     Indication: PRODUCT USED FOR UNKNOWN INDICATION
     Route: 065
     Dates: start: 20181115
  8. ATORVASTATIN [Concomitant]
     Active Substance: ATORVASTATIN
     Indication: PRODUCT USED FOR UNKNOWN INDICATION
     Route: 065
     Dates: start: 20181115
  9. OTEZLA [Suspect]
     Active Substance: APREMILAST
     Indication: PSORIASIS
     Dosage: STARTER PACK (4X10MG+4X20MG + 19X30 MG) DAY 1 - 10 MG MORNING, DAY 2 -10 MG IN MORNING AND IN EVENIN
     Route: 048
     Dates: start: 20180926, end: 20181112
  10. LISINOPRIL. [Concomitant]
     Active Substance: LISINOPRIL
     Indication: RENAL IMPAIRMENT
     Dosage: 20 MILLIGRAM
     Route: 065
     Dates: end: 20181112
  11. PANTOPRAZOL [Concomitant]
     Active Substance: PANTOPRAZOLE SODIUM
     Indication: RENAL IMPAIRMENT
     Dosage: 40 MILLIGRAM
     Route: 065
     Dates: end: 20181112
  12. ACENOCOUMAROL [Concomitant]
     Active Substance: ACENOCOUMAROL
     Indication: PRODUCT USED FOR UNKNOWN INDICATION
     Route: 065
     Dates: start: 20181115
  13. METOPROLOL. [Concomitant]
     Active Substance: METOPROLOL
     Indication: RENAL IMPAIRMENT
     Dosage: 100 MILLIGRAM MGA
     Route: 065
     Dates: end: 20181112
  14. PANTOPRAZOL [Concomitant]
     Active Substance: PANTOPRAZOLE SODIUM
     Indication: PRODUCT USED FOR UNKNOWN INDICATION
     Route: 065
     Dates: start: 20181115
  15. OTEZLA [Suspect]
     Active Substance: APREMILAST
     Dosage: 30 MILLIGRAM
     Route: 048
     Dates: start: 20180925, end: 20181112
  16. OTEZLA [Suspect]
     Active Substance: APREMILAST
     Dosage: 4*10MG, 4*20MG, 19*30MG?ONCE A DAY 1 TABLET OF 1 MG FOR 4 DAYS, THEN ONCE A DAY 20MG FOR 4 DAYS THEN
     Route: 048
     Dates: start: 20181130

REACTIONS (3)
  - Renal impairment [Recovered/Resolved]
  - Diarrhoea [Recovered/Resolved]
  - Cardiac disorder [Recovered/Resolved]

NARRATIVE: CASE EVENT DATE: 2018
